FAERS Safety Report 7632625-4 (Version None)
Quarter: 2011Q3

REPORT INFORMATION
  Report Type: 
  Country: None (occurrence: None)
  Receive Date: 20110725
  Receipt Date: 20101102
  Transmission Date: 20111222
  Serious: No
  Sender: FDA-Public Use
  Company Number: US-BRISTOL-MYERS SQUIBB COMPANY-15363799

PATIENT
  Age: 82 Year
  Sex: Female

DRUGS (3)
  1. THYROID TAB [Concomitant]
     Dosage: OCCASIONAL
  2. TYLENOL-500 [Concomitant]
  3. WARFARIN SODIUM [Suspect]
     Indication: THROMBOSIS
     Dosage: FROM JUN10;THERAPY DURATION:5MONTHS;INTERR FOR3DAYS RESTART5MG/D.6MG 5D/WEEK+7MG/D REMAINING 2D/W
     Dates: start: 20100101

REACTIONS (1)
  - ALOPECIA [None]
